FAERS Safety Report 10641809 (Version 2)
Quarter: 2015Q2

REPORT INFORMATION
  Report Type: Spontaneous
  Country: US (occurrence: US)
  Receive Date: 20141209
  Receipt Date: 20150513
  Transmission Date: 20150821
  Serious: Yes (Hospitalization, Disabling, Other)
  Sender: FDA-Public Use
  Company Number: US-009507513-1412USA002396

PATIENT
  Sex: Female
  Weight: 66.67 kg

DRUGS (2)
  1. FOSAMAX [Suspect]
     Active Substance: ALENDRONATE SODIUM
     Dosage: 70 MG, QW
     Route: 048
     Dates: start: 2002, end: 20100903
  2. FOSAMAX [Suspect]
     Active Substance: ALENDRONATE SODIUM
     Indication: OSTEOPOROSIS
     Dosage: UNK
     Route: 048
     Dates: start: 1998, end: 2002

REACTIONS (55)
  - Hip arthroplasty [Unknown]
  - Epicondylitis [Unknown]
  - Ulcer [Unknown]
  - Muscular weakness [Unknown]
  - Medical device removal [Unknown]
  - Osteotomy [Unknown]
  - Arthrodesis [Unknown]
  - Joint injury [Not Recovered/Not Resolved]
  - Fracture malunion [Unknown]
  - Balance disorder [Unknown]
  - Carpal tunnel syndrome [Unknown]
  - Lumbar spinal stenosis [Unknown]
  - Constipation [Unknown]
  - Nausea [Recovered/Resolved]
  - Breast prosthesis implantation [Unknown]
  - Surgery [Unknown]
  - Anaemia postoperative [Recovering/Resolving]
  - Nerve compression [Unknown]
  - Blepharitis [Unknown]
  - Intramedullary rod insertion [Unknown]
  - Neurogenic bladder [Unknown]
  - Back injury [Not Recovered/Not Resolved]
  - Osteoarthritis [Unknown]
  - Asthma [Unknown]
  - Hypercholesterolaemia [Unknown]
  - Neurogenic bowel [Unknown]
  - Spinal cord injury cervical [Unknown]
  - Toe operation [Unknown]
  - Sciatica [Unknown]
  - Bone formation increased [Unknown]
  - Breast cancer [Unknown]
  - Joint arthroplasty [Unknown]
  - Spinal fusion surgery [Unknown]
  - Bone callus excessive [Unknown]
  - Persistent corneal epithelial defect [Unknown]
  - Bacterial disease carrier [Unknown]
  - Groin pain [Unknown]
  - Myalgia [Unknown]
  - Femur fracture [Recovering/Resolving]
  - Anaemia postoperative [Recovered/Resolved]
  - Mastectomy [Unknown]
  - Postmastectomy lymphoedema syndrome [Unknown]
  - Pain in extremity [Unknown]
  - Coccidioidomycosis [Unknown]
  - Hernia repair [Unknown]
  - Bursitis [Unknown]
  - Visual impairment [Unknown]
  - Gastrooesophageal reflux disease [Unknown]
  - Fracture malunion [Not Recovered/Not Resolved]
  - Spinal fusion surgery [Unknown]
  - Cervical myelopathy [Unknown]
  - Neuropathy peripheral [Unknown]
  - Pleural effusion [Unknown]
  - Scoliosis [Unknown]
  - Insomnia [Unknown]

NARRATIVE: CASE EVENT DATE: 19991104
